FAERS Safety Report 25263830 (Version 1)
Quarter: 2025Q2

REPORT INFORMATION
  Report Type: Spontaneous
  Country: US (occurrence: US)
  Receive Date: 20250502
  Receipt Date: 20250502
  Transmission Date: 20250716
  Serious: No
  Sender: BRISTOL MYERS SQUIBB
  Company Number: US-BRISTOL-MYERS SQUIBB COMPANY-2025-064428

PATIENT
  Age: 63 Year
  Sex: Male

DRUGS (2)
  1. ONUREG [Suspect]
     Active Substance: AZACITIDINE
     Indication: Product used for unknown indication
     Dosage: DAYS 1-10 OF A 28 DAY CYCLE
     Route: 048
  2. ONUREG [Suspect]
     Active Substance: AZACITIDINE
     Dosage: DAYS 1-14 OF A 28 DAY CYCLE^
     Route: 048

REACTIONS (1)
  - Off label use [Unknown]
